FAERS Safety Report 8362586-4 (Version None)
Quarter: 2012Q2

REPORT INFORMATION
  Report Type: 
  Country: None (occurrence: None)
  Receive Date: 20120516
  Receipt Date: 20120514
  Transmission Date: 20120825
  Serious: No
  Sender: FDA-Public Use
  Company Number: US-PFIZER INC-2012117072

PATIENT
  Sex: Female

DRUGS (13)
  1. ALPRAZOLAM [Suspect]
     Indication: ANXIETY
     Dosage: 0.25 MG, UNK
     Route: 048
     Dates: start: 20120425, end: 20120425
  2. TOPAMAX [Concomitant]
     Indication: CONVULSION PROPHYLAXIS
     Dosage: 75 MG, 2X/DAY
     Route: 048
  3. LOPID [Concomitant]
     Indication: BLOOD TRIGLYCERIDES INCREASED
     Dosage: 600 MG, 2X/DAY
     Route: 048
  4. LASIX [Concomitant]
     Indication: FLUID RETENTION
     Dosage: 20 MG, AS NEEDED
  5. CELEXA [Concomitant]
     Indication: DEPRESSION
     Dosage: 30 MG, DAILY
  6. VERAPAMIL [Concomitant]
     Indication: HYPERTENSION
     Dosage: 360 MG, DAILY
  7. ATIVAN [Concomitant]
     Indication: ANXIETY
     Dosage: 1 MG, 2X/DAY
  8. PRILOSEC [Concomitant]
     Indication: DYSPEPSIA
     Dosage: 20 MG, DAILY
  9. POTASSIUM CHLORIDE [Concomitant]
     Dosage: 10 MG, AS NEEDED
  10. PRAVACHOL [Concomitant]
     Indication: BLOOD CHOLESTEROL INCREASED
     Dosage: 80 MG, DAILY
  11. LISINOPRIL [Concomitant]
     Indication: HYPERTENSION
     Dosage: 20 MG, DAILY
  12. METFORMIN [Concomitant]
     Indication: DIABETES MELLITUS
     Dosage: 500 MG, 2X/DAY
  13. AMOXICILLIN [Concomitant]
     Dosage: UNK

REACTIONS (3)
  - RASH MORBILLIFORM [None]
  - DRY SKIN [None]
  - PRURITUS [None]
